FAERS Safety Report 16918327 (Version 2)
Quarter: 2019Q4

REPORT INFORMATION
  Report Type: Spontaneous
  Country: JP (occurrence: JP)
  Receive Date: 20191015
  Receipt Date: 20191108
  Transmission Date: 20200122
  Serious: Yes (Hospitalization)
  Sender: FDA-Public Use
  Company Number: JP-PFIZER INC-2019434492

PATIENT
  Age: 36 Year
  Sex: Female
  Weight: 48 kg

DRUGS (10)
  1. PREDONINE [Suspect]
     Active Substance: PREDNISOLONE
     Indication: INTERSTITIAL LUNG DISEASE
     Dosage: 25 MG, 2X/DAY
     Route: 048
     Dates: start: 20190617
  2. XELJANZ [Suspect]
     Active Substance: TOFACITINIB CITRATE
     Indication: INTERSTITIAL LUNG DISEASE
     Dosage: 5 MG, 2X/DAY
     Route: 048
     Dates: start: 20190620
  3. AMITIZA [Concomitant]
     Active Substance: LUBIPROSTONE
     Dosage: 48 UG, 2X/DAY, AFTER BREAKFAST AND DINNER
  4. BAKTAR [Concomitant]
     Active Substance: SULFAMETHOXAZOLE\TRIMETHOPRIM
     Dosage: 1 DF, 1X/DAY, AFTER BREAKFAST
     Dates: start: 20190617
  5. NEXIUM I.V. [Concomitant]
     Active Substance: ESOMEPRAZOLE SODIUM
     Dosage: 20 MG, 1X/DAY, AFTER BREAKFAST
  6. AMLODIPINE [Concomitant]
     Active Substance: AMLODIPINE BESYLATE
     Dosage: 5 MG, 1X/DAY, AFTER BREAKFAST
     Dates: start: 20190816
  7. PREDONINE [Suspect]
     Active Substance: PREDNISOLONE
     Dosage: 80 MG, DAILY
     Route: 048
     Dates: end: 20190821
  8. PREDONINE [Suspect]
     Active Substance: PREDNISOLONE
     Dosage: 45 MG, DAILY
     Route: 048
     Dates: start: 20190822
  9. PROGRAF [Suspect]
     Active Substance: TACROLIMUS
     Indication: INTERSTITIAL LUNG DISEASE
     Dosage: 0.5 G, 2X/DAY
     Route: 048
     Dates: start: 20190620
  10. EDIROL [Concomitant]
     Active Substance: ELDECALCITOL
     Dosage: 0.75 UG, 1X/DAY, AFTER BREAKFAST

REACTIONS (3)
  - Off label use [Unknown]
  - Drug ineffective for unapproved indication [Unknown]
  - Cytomegalovirus viraemia [Recovered/Resolved]

NARRATIVE: CASE EVENT DATE: 20190620
